FAERS Safety Report 5888264-9 (Version None)
Quarter: 2008Q3

REPORT INFORMATION
  Report Type: 
  Country: None (occurrence: None)
  Receive Date: 20080916
  Receipt Date: 20080901
  Transmission Date: 20090109
  Serious: Yes (Other)
  Sender: FDA-Public Use
  Company Number: 1000000929

PATIENT
  Age: 60 Year
  Sex: Female

DRUGS (5)
  1. ESCITALOPRAM OXALATE [Suspect]
     Indication: DEPRESSION
  2. FLUOXETINE [Suspect]
     Indication: DEPRESSION
  3. PAROXETINE HCL [Suspect]
     Indication: DEPRESSION
  4. SERTRALINE [Suspect]
     Indication: DEPRESSION
  5. VENLAFAXINE HCL [Suspect]
     Indication: DEPRESSION

REACTIONS (1)
  - FEMALE SEXUAL AROUSAL DISORDER [None]
